FAERS Safety Report 9973177 (Version 2)
Quarter: 2014Q1

REPORT INFORMATION
  Report Type: Report from Study
  Country: US (occurrence: US)
  Receive Date: 20140306
  Receipt Date: 20140306
  Transmission Date: 20141002
  Serious: No
  Sender: FDA-Public Use
  Company Number: US-ABBVIE-13P-163-1086898-00

PATIENT
  Sex: Female

DRUGS (7)
  1. HUMIRA [Suspect]
     Indication: ANKYLOSING SPONDYLITIS
     Dates: start: 201210, end: 201306
  2. HUMIRA [Suspect]
     Dates: start: 20130619
  3. VICODIN [Concomitant]
     Indication: PAIN
     Dosage: 3-4 TIMES DAILY
  4. ASPIRIN [Concomitant]
     Indication: PAIN
     Route: 048
  5. PROZAC [Concomitant]
     Indication: ILL-DEFINED DISORDER
     Route: 048
  6. PROZAC [Concomitant]
     Indication: MENOPAUSE
  7. VITAMINS [Concomitant]
     Indication: MALABSORPTION
     Dosage: DAILY
     Route: 048

REACTIONS (6)
  - Joint stiffness [Not Recovered/Not Resolved]
  - Arthritis [Not Recovered/Not Resolved]
  - Pain in extremity [Not Recovered/Not Resolved]
  - Arthralgia [Unknown]
  - Musculoskeletal stiffness [Unknown]
  - Unevaluable event [Unknown]
